FAERS Safety Report 9951490 (Version 1)
Quarter: 2014Q1

REPORT INFORMATION
  Report Type: Spontaneous
  Country: US (occurrence: US)
  Receive Date: 20140304
  Receipt Date: 20140304
  Transmission Date: 20141002
  Serious: No
  Sender: FDA-Public Use
  Company Number: US-009507513-1402USA007025

PATIENT
  Age: 25 Year
  Sex: Female

DRUGS (2)
  1. REBETOL [Suspect]
     Dosage: 1000 MG, BID; STRENGTH 600 + 400 MG
     Route: 048
     Dates: start: 20140211
  2. PEGINTRON [Suspect]
     Indication: HEPATITIS C
     Dosage: 0.5 CC, ONCE A WEEK
     Route: 058
     Dates: start: 20140211

REACTIONS (1)
  - Myalgia [Unknown]
